FAERS Safety Report 8869924 (Version 1)
Quarter: 2012Q4

REPORT INFORMATION
  Report Type: Spontaneous
  Country: US (occurrence: None)
  Receive Date: 20121024
  Receipt Date: 20121024
  Transmission Date: 20130627
  Serious: Yes (Hospitalization)
  Sender: FDA-Public Use
  Company Number: 100830-009073

PATIENT
  Age: 54 Year
  Sex: Female

DRUGS (1)
  1. MEANINGFUL BEAUTY DAY CREME SPF [Suspect]
     Dosage: dermal
     Dates: start: 20100802, end: 20100815

REACTIONS (2)
  - Rash generalised [None]
  - Headache [None]
